FAERS Safety Report 19645628 (Version 3)
Quarter: 2021Q3

REPORT INFORMATION
  Report Type: Report from Study
  Country: BR (occurrence: BR)
  Receive Date: 20210802
  Receipt Date: 20210820
  Transmission Date: 20211014
  Serious: Yes (Hospitalization, Other)
  Sender: FDA-Public Use
  Company Number: NVSC2021BR168000

PATIENT
  Age: 58 Year
  Sex: Male

DRUGS (2)
  1. DABRAFENIB [Suspect]
     Active Substance: DABRAFENIB
     Indication: METASTATIC MALIGNANT MELANOMA
     Dosage: 150 MG, Q12H
     Route: 065
     Dates: start: 20190125
  2. TRAMETINIB [Suspect]
     Active Substance: TRAMETINIB
     Indication: METASTATIC MALIGNANT MELANOMA
     Dosage: 2 MG (DAY)
     Route: 065
     Dates: start: 20190125

REACTIONS (9)
  - Vasogenic cerebral oedema [Unknown]
  - Vomiting [Unknown]
  - Necrosis [Unknown]
  - Glycolysis increased [Unknown]
  - Gastritis [Unknown]
  - Lymphadenopathy [Unknown]
  - Metastases to stomach [Recovering/Resolving]
  - Nausea [Unknown]
  - Metastases to central nervous system [Recovering/Resolving]

NARRATIVE: CASE EVENT DATE: 20190220
